FAERS Safety Report 12885153 (Version 1)
Quarter: 2016Q4

REPORT INFORMATION
  Report Type: Spontaneous
  Country: JP (occurrence: JP)
  Receive Date: 20161026
  Receipt Date: 20161026
  Transmission Date: 20170207
  Serious: Yes (Other)
  Sender: FDA-Public Use
  Company Number: JP-PFIZER INC-2016488378

PATIENT
  Age: 79 Year
  Sex: Female

DRUGS (2)
  1. UFT [Suspect]
     Active Substance: TEGAFUR\URACIL
     Route: 048
  2. LEUCOVORIN. [Suspect]
     Active Substance: LEUCOVORIN
     Indication: COLON CANCER
     Dosage: UNK
     Route: 048

REACTIONS (1)
  - Small intestine ulcer [Recovering/Resolving]
